FAERS Safety Report 6467562-4 (Version None)
Quarter: 2009Q4

REPORT INFORMATION
  Report Type: 
  Country: None (occurrence: None)
  Receive Date: 20091202
  Receipt Date: 20091125
  Transmission Date: 20100525
  Serious: Yes (Hospitalization)
  Sender: FDA-Public Use
  Company Number: US-GILEAD-2009-0025507

PATIENT
  Sex: Female
  Weight: 51.302 kg

DRUGS (11)
  1. LETAIRIS [Suspect]
     Indication: PULMONARY ARTERIAL HYPERTENSION
     Route: 048
     Dates: start: 20090429
  2. COUMADIN [Concomitant]
  3. LASIX [Concomitant]
  4. ALDACTONE [Concomitant]
  5. LANOXIN [Concomitant]
  6. CARDIZEM [Concomitant]
  7. LIPITOR [Concomitant]
  8. FEXOFENADINE [Concomitant]
  9. SPIRIVA [Concomitant]
  10. FISH OIL [Concomitant]
  11. ZINC/VITAMIN C/ENCHINACEA [Concomitant]

REACTIONS (6)
  - ANAEMIA [None]
  - ATRIAL FIBRILLATION [None]
  - CARDIAC ARREST [None]
  - DYSPNOEA [None]
  - INTERNATIONAL NORMALISED RATIO INCREASED [None]
  - LOWER GASTROINTESTINAL HAEMORRHAGE [None]
